FAERS Safety Report 8048088-3 (Version None)
Quarter: 2012Q1

REPORT INFORMATION
  Report Type: 
  Country: None (occurrence: None)
  Receive Date: 20120113
  Receipt Date: 20120113
  Transmission Date: 20120608
  Serious: Yes (Hospitalization)
  Sender: FDA-Public Use
  Company Number: None

PATIENT
  Age: 79 Year
  Sex: Male
  Weight: 115.9 kg

DRUGS (2)
  1. INSULIN [Suspect]
     Indication: DIABETES MELLITUS
     Dosage: ML SQ
     Route: 058
     Dates: start: 20031117
  2. INSULIN [Suspect]
     Indication: DIABETES MELLITUS
     Dosage: ML SQ
     Route: 058
     Dates: start: 20020619, end: 20111214

REACTIONS (5)
  - HYPOGLYCAEMIA [None]
  - CONFUSIONAL STATE [None]
  - TREATMENT NONCOMPLIANCE [None]
  - DRUG ADMINISTRATION ERROR [None]
  - UNRESPONSIVE TO STIMULI [None]
